FAERS Safety Report 7677340-6 (Version None)
Quarter: 2011Q3

REPORT INFORMATION
  Report Type: 
  Country: None (occurrence: None)
  Receive Date: 20110810
  Receipt Date: 20110810
  Transmission Date: 20111222
  Serious: Yes (Hospitalization)
  Sender: FDA-Public Use
  Company Number: None

PATIENT
  Age: 18 Year
  Sex: Female
  Weight: 106.8 kg

DRUGS (1)
  1. HUMAN SYNTHETIC SECRETIN 21 MCG CHIRHOCLIN [Suspect]
     Indication: EXOCRINE PANCREATIC FUNCTION TEST
     Dosage: 21 MCG X 1 IV
     Route: 042
     Dates: start: 20081210

REACTIONS (3)
  - PANCREATITIS ACUTE [None]
  - ABDOMINAL PAIN [None]
  - LIPASE INCREASED [None]
